FAERS Safety Report 13737587 (Version 1)
Quarter: 2017Q3

REPORT INFORMATION
  Report Type: Spontaneous
  Country: US (occurrence: US)
  Receive Date: 20170710
  Receipt Date: 20170710
  Transmission Date: 20171127
  Serious: Yes (Other)
  Sender: FDA-Public Use
  Company Number: US-SAOL THERAPEUTICS-2016SAO00759

PATIENT
  Age: 9 Year
  Sex: Female
  Weight: 26.1 kg

DRUGS (3)
  1. LIORESAL [Suspect]
     Active Substance: BACLOFEN
     Indication: SPINAL CORD INJURY
     Dosage: 1081.9 ?G, \DAY
     Route: 037
  2. BACLOFEN. [Concomitant]
     Active Substance: BACLOFEN
  3. GABAPENTIN. [Concomitant]
     Active Substance: GABAPENTIN

REACTIONS (4)
  - Muscle spasms [Unknown]
  - Therapy non-responder [Unknown]
  - Clonus [Unknown]
  - Device occlusion [Unknown]

NARRATIVE: CASE EVENT DATE: 201608
